FAERS Safety Report 24376355 (Version 1)
Quarter: 2024Q3

REPORT INFORMATION
  Report Type: Spontaneous
  Country: NL (occurrence: NL)
  Receive Date: 20240930
  Receipt Date: 20240930
  Transmission Date: 20241017
  Serious: Yes (Hospitalization, Other)
  Sender: AUROBINDO
  Company Number: NL-ABBVIE-5906448

PATIENT
  Age: 78 Year
  Sex: Male

DRUGS (8)
  1. PREGABALIN [Suspect]
     Active Substance: PREGABALIN
     Indication: Back pain
     Dosage: UNK
     Route: 065
     Dates: start: 202409
  2. PREGABALIN [Suspect]
     Active Substance: PREGABALIN
     Dosage: UNK (INCREASED)
     Route: 065
  3. PREGABALIN [Suspect]
     Active Substance: PREGABALIN
     Dosage: UNK (DECREASED)
     Route: 065
  4. CARBIDOPA\LEVODOPA [Suspect]
     Active Substance: CARBIDOPA\LEVODOPA
     Indication: Parkinson^s disease
     Dosage: UNK
     Dates: start: 20220321
  5. CARBIDOPA\LEVODOPA [Suspect]
     Active Substance: CARBIDOPA\LEVODOPA
     Dosage: UNK (MD 8.5 ML; CD 5.0 ??ML/H; ED 4.0 ML; END: 3.0 ML; CND: 2.9 ML/HDURATION TEXT: REMAINS AT 24 HOU
     Dates: start: 20240314, end: 20240820
  6. CARBIDOPA\LEVODOPA [Suspect]
     Active Substance: CARBIDOPA\LEVODOPA
     Dosage: UNK (MD 8.5 ML; CD 5.2 ML/H; ED 4.0 ML; END: 3.0 ML; CND: 3.1 ML/H, DURATION TEXT: REMAINS AT 24 HOU
     Dates: start: 20240820, end: 20240909
  7. CARBIDOPA\LEVODOPA [Suspect]
     Active Substance: CARBIDOPA\LEVODOPA
     Dosage: UNK (MD 8.5 ML; CD 5.0 ML/H; ED 4.0 ML; END: 3.0 ML; CND: 3.1 ML/H)
     Dates: start: 20240909
  8. POLYETHYLENE GLYCOLS [Concomitant]
     Active Substance: POLYETHYLENE GLYCOLS
     Indication: Abnormal faeces
     Dosage: 2 SACHET, ONCE A DAY (FREQUENCY TEXT: 2 SACHETS PER DAY)
     Route: 065

REACTIONS (29)
  - Rehabilitation therapy [Recovered/Resolved]
  - Hospitalisation [Recovered/Resolved]
  - Hallucination [Not Recovered/Not Resolved]
  - Hypoacusis [Not Recovered/Not Resolved]
  - Delirium [Not Recovered/Not Resolved]
  - Dystonia [Not Recovered/Not Resolved]
  - Transient ischaemic attack [Unknown]
  - Syncope [Recovered/Resolved]
  - Weight decreased [Not Recovered/Not Resolved]
  - Stoma site irritation [Not Recovered/Not Resolved]
  - On and off phenomenon [Not Recovered/Not Resolved]
  - Tremor [Not Recovered/Not Resolved]
  - Confusional state [Not Recovered/Not Resolved]
  - Apathy [Not Recovered/Not Resolved]
  - Cognitive disorder [Not Recovered/Not Resolved]
  - Stoma site discharge [Not Recovered/Not Resolved]
  - Hyperkinesia [Not Recovered/Not Resolved]
  - Restlessness [Not Recovered/Not Resolved]
  - Muscle rigidity [Not Recovered/Not Resolved]
  - Bradykinesia [Not Recovered/Not Resolved]
  - Stoma site reaction [Not Recovered/Not Resolved]
  - Gait disturbance [Not Recovered/Not Resolved]
  - Asthenia [Not Recovered/Not Resolved]
  - Loss of personal independence in daily activities [Not Recovered/Not Resolved]
  - Illness [Unknown]
  - Dyskinesia [Recovering/Resolving]
  - Back pain [Recovered/Resolved]
  - Unevaluable event [Not Recovered/Not Resolved]
  - Therapeutic product effect incomplete [Not Recovered/Not Resolved]

NARRATIVE: CASE EVENT DATE: 20230901
